FAERS Safety Report 18123082 (Version 1)
Quarter: 2020Q3

REPORT INFORMATION
  Report Type: Spontaneous
  Country: FR (occurrence: FR)
  Receive Date: 20200807
  Receipt Date: 20200807
  Transmission Date: 20201103
  Serious: Yes (Life-Threatening, Hospitalization)
  Sender: FDA-Public Use
  Company Number: FR-CADILA HEALTHCARE LIMITED-FR-ZYDUS-024442

PATIENT

DRUGS (10)
  1. CALCIDOSE VITAMINE D [Concomitant]
     Active Substance: CALCIUM\CHOLECALCIFEROL
     Dosage: ()
  2. BISOPROLOL [Suspect]
     Active Substance: BISOPROLOL
     Indication: SUICIDE ATTEMPT
     Dosage: 200 MILLIGRAM
     Route: 048
     Dates: start: 20180515, end: 20180515
  3. PAROXETINE. [Suspect]
     Active Substance: PAROXETINE
     Indication: SUICIDE ATTEMPT
     Dosage: 300 MILLIGRAM
     Route: 048
     Dates: start: 20180515, end: 20180515
  4. ASPEGIC [Concomitant]
     Dosage: ()
  5. ATORVASTATIN [Suspect]
     Active Substance: ATORVASTATIN
     Indication: SUICIDE ATTEMPT
     Dosage: 1600 MILLIGRAM
     Route: 048
     Dates: start: 20180515, end: 20180515
  6. BROMAZEPAM [Concomitant]
     Active Substance: BROMAZEPAM
     Dosage: ()
  7. ALPRAZOLAM. [Concomitant]
     Active Substance: ALPRAZOLAM
     Dates: start: 20180515, end: 20180515
  8. DOLIPRANE [Concomitant]
     Active Substance: ACETAMINOPHEN
  9. VALSARTAN. [Suspect]
     Active Substance: VALSARTAN
     Indication: SUICIDE ATTEMPT
     Dosage: 3200 MILLIGRAM
     Route: 048
     Dates: start: 20180515, end: 20180515
  10. ZOPICLONE [Suspect]
     Active Substance: ZOPICLONE
     Indication: SUICIDE ATTEMPT
     Dosage: 225 MILLIGRAM
     Route: 048
     Dates: start: 20180515, end: 20180515

REACTIONS (2)
  - Bradycardia [Recovered/Resolved]
  - Somnolence [Recovered/Resolved]

NARRATIVE: CASE EVENT DATE: 20180515
